FAERS Safety Report 19179133 (Version 1)
Quarter: 2021Q2

REPORT INFORMATION
  Report Type: Spontaneous
  Country: US (occurrence: US)
  Receive Date: 20210426
  Receipt Date: 20210426
  Transmission Date: 20210717
  Serious: Yes (Hospitalization, Other)
  Sender: FDA-Public Use
  Company Number: US-SA-2021SA129885

PATIENT
  Age: 4 Year
  Sex: Female

DRUGS (3)
  1. GANCICLOVIR. [Concomitant]
     Active Substance: GANCICLOVIR
     Indication: CYTOMEGALOVIRUS COLITIS
  2. SEVELAMER SALT NOT SPECIFIED [Suspect]
     Active Substance: SEVELAMER
     Indication: BLOOD PHOSPHORUS INCREASED
  3. POLYSTYRENE SULFONATE SODIUM [Suspect]
     Active Substance: SODIUM POLYSTYRENE SULFONATE
     Indication: BLOOD POTASSIUM INCREASED

REACTIONS (8)
  - Gastrointestinal ulcer [Recovering/Resolving]
  - Haematochezia [Recovered/Resolved]
  - Gastrointestinal injury [Recovering/Resolving]
  - Gastrointestinal motility disorder [Recovering/Resolving]
  - Gastrointestinal polyp [Recovered/Resolved]
  - Gastrointestinal haemorrhage [Recovering/Resolving]
  - Rectal haemorrhage [Recovering/Resolving]
  - Product deposit [Recovering/Resolving]
